FAERS Safety Report 7598298-4 (Version None)
Quarter: 2011Q3

REPORT INFORMATION
  Report Type: 
  Country: None (occurrence: None)
  Receive Date: 20110708
  Receipt Date: 20110704
  Transmission Date: 20111222
  Serious: Yes (Death)
  Sender: FDA-Public Use
  Company Number: JP-B.I. PHARMACEUTICALS,INC./RIDGEFIELD-2011-BP-16799NB

PATIENT
  Sex: Male
  Weight: 80 kg

DRUGS (2)
  1. TELMISARTAN AND HYDROCHLOROTHIAZIDE [Suspect]
     Indication: HYPERTENSION
     Dosage: TELMISARTAN 40 MG/HYDROCHLOROTHIAZIDE 12.5 MG
     Route: 048
     Dates: start: 20100529, end: 20110108
  2. ZOLOFT [Concomitant]
     Indication: AFFECTIVE DISORDER
     Dosage: 50 MG
     Route: 048
     Dates: end: 20110108

REACTIONS (1)
  - COMPLETED SUICIDE [None]
